FAERS Safety Report 20455988 (Version 3)
Quarter: 2022Q2

REPORT INFORMATION
  Report Type: Other
  Country: US (occurrence: None)
  Receive Date: 20220210
  Receipt Date: 20220404
  Transmission Date: 20220721
  Serious: No
  Sender: FDA-Public Use
  Company Number: US-ROCHE-3013920

PATIENT
  Age: 70 Year
  Sex: Male
  Weight: 78.542 kg

DRUGS (5)
  1. OCREVUS [Suspect]
     Active Substance: OCRELIZUMAB
     Indication: Relapsing multiple sclerosis
     Dosage: INFUSE 1000 MG OVER 13.5 HOURS
     Route: 042
     Dates: start: 20200813
  2. CRESTOR [Concomitant]
     Active Substance: ROSUVASTATIN CALCIUM
  3. COVID-19 VACCINE - UNKNOWN [Concomitant]
     Dosage: SECOND DOSE: 20/MAR/2021?BOOSTER: 26/AUG/2021
     Dates: start: 20210202
  4. LOSARTAN [Concomitant]
     Active Substance: LOSARTAN
  5. ASPIRIN [Concomitant]
     Active Substance: ASPIRIN

REACTIONS (2)
  - COVID-19 [Recovered/Resolved]
  - Pyrexia [Unknown]

NARRATIVE: CASE EVENT DATE: 20220113
